FAERS Safety Report 5326696-8 (Version None)
Quarter: 2007Q2

REPORT INFORMATION
  Report Type: 
  Country: None (occurrence: None)
  Receive Date: 20070516
  Receipt Date: 20070504
  Transmission Date: 20071010
  Serious: Yes (Hospitalization)
  Sender: FDA-Public Use
  Company Number: UA-SHR-UA-2006-039887

PATIENT
  Age: 53 Year
  Sex: Female
  Weight: 84 kg

DRUGS (10)
  1. FLUDARABINE PHOSPHATE [Suspect]
     Dates: start: 20070104, end: 20070105
  2. FLUDARABINE PHOSPHATE [Suspect]
     Dosage: 56 MG, 1X/DAY
     Route: 042
     Dates: start: 20060904, end: 20061116
  3. CAMPATH [Suspect]
     Dosage: 10 MG, 1 DOSE
     Route: 042
     Dates: start: 20060829, end: 20060829
  4. CAMPATH [Suspect]
     Dosage: 10 MG, 1 DOSE
     Route: 042
     Dates: start: 20060830, end: 20060830
  5. CAMPATH [Suspect]
     Dosage: 30 MG, 1 DOSE
     Route: 042
     Dates: start: 20060831, end: 20060831
  6. CAMPATH [Suspect]
     Dosage: 30 MG, 1X/3 WEEKS
     Route: 042
     Dates: start: 20060904, end: 20061116
  7. CAMPATH [Suspect]
     Dates: start: 20070104, end: 20070105
  8. CAMPATH [Suspect]
     Dosage: 3 MG, 1 DOSE
     Route: 042
     Dates: start: 20060828, end: 20060828
  9. CO-TRIMOXAZOLE [Concomitant]
     Dosage: UNK, UNK
     Route: 048
     Dates: start: 20061009
  10. ACYCLOVIR [Concomitant]
     Indication: ANTIVIRAL PROPHYLAXIS
     Route: 048
     Dates: start: 20061009

REACTIONS (1)
  - PERICARDITIS [None]
